FAERS Safety Report 11739715 (Version 1)
Quarter: 2015Q4

REPORT INFORMATION
  Report Type: Report from Study
  Country: AU (occurrence: AU)
  Receive Date: 20151113
  Receipt Date: 20151113
  Transmission Date: 20160304
  Serious: Yes (Other)
  Sender: FDA-Public Use
  Company Number: AU-ABBVIE-15P-008-1496959-00

PATIENT
  Age: 48 Year
  Sex: Male

DRUGS (1)
  1. VIEKIRA PAK-RBV 600 [Suspect]
     Active Substance: DASABUVIR\OMBITASVIR\PARITAPREVIR\RIBAVIRIN\RITONAVIR
     Indication: HEPATITIS C
     Route: 048
     Dates: start: 20151027

REACTIONS (5)
  - Jaundice [Not Recovered/Not Resolved]
  - Diarrhoea [Recovering/Resolving]
  - Pruritus [Recovering/Resolving]
  - Fatigue [Not Recovered/Not Resolved]
  - Insomnia [Not Recovered/Not Resolved]

NARRATIVE: CASE EVENT DATE: 20151027
